FAERS Safety Report 16765455 (Version 2)
Quarter: 2019Q4

REPORT INFORMATION
  Report Type: Spontaneous
  Country: US (occurrence: US)
  Receive Date: 20190903
  Receipt Date: 20191021
  Transmission Date: 20200122
  Serious: Yes (Hospitalization, Other)
  Sender: FDA-Public Use
  Company Number: US-GLAXOSMITHKLINE-US2019156565

PATIENT
  Age: 76 Year
  Sex: Female

DRUGS (1)
  1. BREO ELLIPTA [Suspect]
     Active Substance: FLUTICASONE FUROATE\VILANTEROL TRIFENATATE
     Indication: BRONCHIECTASIS
     Dosage: 1 PUFF(S), QD
     Route: 055

REACTIONS (8)
  - Vomiting [Recovered/Resolved]
  - Cough [Unknown]
  - Product dose omission [Unknown]
  - Diverticulitis [Recovered/Resolved]
  - Bronchiectasis [Unknown]
  - Drug ineffective [Unknown]
  - Product complaint [Unknown]
  - Condition aggravated [Unknown]

NARRATIVE: CASE EVENT DATE: 20190730
